FAERS Safety Report 22280690 (Version 1)
Quarter: 2023Q2

REPORT INFORMATION
  Report Type: Spontaneous
  Country: US (occurrence: None)
  Receive Date: 20230502
  Receipt Date: 20230502
  Transmission Date: 20230721
  Serious: No
  Sender: FDA-Public Use
  Company Number: None

PATIENT
  Age: 46 Year
  Sex: 0
  Weight: 76.5 kg

DRUGS (1)
  1. DEXTROAMPHET SACCHARAT, AMPHET ASPARTATE, DEXTROAMPHET SULFATE AND AMP [Suspect]
     Active Substance: AMPHETAMINE ASPARTATE\AMPHETAMINE ASPARTATE MONOHYDRATE\AMPHETAMINE SULFATE\DEXTROAMPHETAMINE SACCHA
     Indication: Attention deficit hyperactivity disorder
     Dosage: DAILY ?
     Dates: start: 20230502, end: 20230502

REACTIONS (9)
  - Product availability issue [None]
  - Product substitution issue [None]
  - Therapeutic response changed [None]
  - Anxiety [None]
  - Depression [None]
  - Crying [None]
  - Nausea [None]
  - Headache [None]
  - Product quality issue [None]

NARRATIVE: CASE EVENT DATE: 20230502
